FAERS Safety Report 6821655-8 (Version None)
Quarter: 2010Q3

REPORT INFORMATION
  Report Type: 
  Country: None (occurrence: None)
  Receive Date: 20100707
  Receipt Date: 20090524
  Transmission Date: 20110219
  Serious: No
  Sender: FDA-Public Use
  Company Number: US-PFIZER INC-2009188507

PATIENT
  Sex: Female
  Weight: 60.317 kg

DRUGS (3)
  1. SERTRALINE HCL [Suspect]
     Indication: OBSESSIVE-COMPULSIVE DISORDER
     Dosage: 50 MG, 1X/DAY
     Dates: start: 20020101
  2. LEVOTHYROXINE SODIUM [Concomitant]
     Dosage: UNK
  3. TOPAMAX [Concomitant]
     Indication: CONVULSION
     Dosage: UNK

REACTIONS (3)
  - FEELING ABNORMAL [None]
  - SLEEP DISORDER [None]
  - WITHDRAWAL SYNDROME [None]
